FAERS Safety Report 17423562 (Version 1)
Quarter: 2020Q1

REPORT INFORMATION
  Report Type: Report from Study
  Country: None (occurrence: US)
  Receive Date: 20200217
  Receipt Date: 20200217
  Transmission Date: 20200409
  Serious: Yes (Hospitalization)
  Sender: FDA-Public Use
  Company Number: US-ABBVIE-20K-163-3274428-00

PATIENT
  Sex: Male

DRUGS (1)
  1. DUOPA [Suspect]
     Active Substance: CARBIDOPA\LEVODOPA
     Indication: PARKINSON^S DISEASE
     Route: 050
     Dates: start: 2019

REACTIONS (5)
  - Myalgia [Recovering/Resolving]
  - Peripheral coldness [Unknown]
  - Malaise [Unknown]
  - Device dislocation [Unknown]
  - Dizziness [Unknown]

NARRATIVE: CASE EVENT DATE: 2020
